FAERS Safety Report 7262127-9 (Version None)
Quarter: 2011Q1

REPORT INFORMATION
  Report Type: 
  Country: None (occurrence: None)
  Receive Date: 20110130
  Receipt Date: 20101201
  Transmission Date: 20110831
  Serious: No
  Sender: FDA-Public Use
  Company Number: US-ABBOTT-10P-163-0689114-00

PATIENT
  Sex: Female
  Weight: 50.394 kg

DRUGS (3)
  1. HUMIRA [Suspect]
     Dosage: STOPPED FOR THREE MONTHS DURING THE SUMMER DUE TO BRUISING AND LACK OF INSURANCE.
     Route: 058
  2. HUMIRA [Suspect]
     Indication: RHEUMATOID ARTHRITIS
     Dosage: LOT NUMBER AND EXPIRATION UNAVAILABLE.
     Route: 058
  3. METHOTREXATE [Concomitant]
     Indication: RHEUMATOID ARTHRITIS

REACTIONS (2)
  - INJECTION SITE HAEMATOMA [None]
  - ARTHROPATHY [None]
